FAERS Safety Report 6609626-8 (Version None)
Quarter: 2010Q1

REPORT INFORMATION
  Report Type: 
  Country: None (occurrence: None)
  Receive Date: 20100302
  Receipt Date: 20100219
  Transmission Date: 20100710
  Serious: Yes (Other)
  Sender: FDA-Public Use
  Company Number: DE-BRISTOL-MYERS SQUIBB COMPANY-14847677

PATIENT
  Age: 17 Year
  Sex: Female
  Weight: 47 kg

DRUGS (2)
  1. ABILIFY [Suspect]
     Indication: DELUSION
     Dosage: HALF A TAB
     Route: 048
     Dates: start: 20091009
  2. ORFIRIL [Interacting]
     Indication: EPILEPSY
     Dosage: 28OCT09-1NOV09=750MG;2NOV-10NOV09=600MG;FROM 11NOV09=750MG.
     Route: 048
     Dates: start: 20091028

REACTIONS (4)
  - ANTICONVULSANT DRUG LEVEL INCREASED [None]
  - BLOOD BILIRUBIN INCREASED [None]
  - BLOOD GLUCOSE INCREASED [None]
  - DRUG INTERACTION [None]
